FAERS Safety Report 6780893-3 (Version None)
Quarter: 2010Q2

REPORT INFORMATION
  Report Type: 
  Country: None (occurrence: None)
  Receive Date: 20100621
  Receipt Date: 20100319
  Transmission Date: 20101027
  Serious: Yes (Death, Hospitalization, Other)
  Sender: FDA-Public Use
  Company Number: JP-BAYER-200910432BYL

PATIENT
  Age: 67 Year
  Sex: Male

DRUGS (2)
  1. NEXAVAR [Suspect]
     Indication: RENAL CELL CARCINOMA
     Dosage: UNIT DOSE: 200 MG
     Route: 048
     Dates: start: 20080728, end: 20080831
  2. NEXAVAR [Suspect]
     Dosage: UNIT DOSE: 200 MG
     Route: 048
     Dates: start: 20080901, end: 20090305

REACTIONS (7)
  - CELLULITIS [None]
  - ERYTHEMA [None]
  - GENITAL RASH [None]
  - PANCREATITIS [None]
  - RENAL CELL CARCINOMA [None]
  - SKIN HYPERTROPHY [None]
  - SKIN ULCER [None]
